FAERS Safety Report 16953535 (Version 1)
Quarter: 2019Q4

REPORT INFORMATION
  Report Type: Spontaneous
  Country: US (occurrence: US)
  Receive Date: 20191023
  Receipt Date: 20191023
  Transmission Date: 20200122
  Serious: No
  Sender: FDA-Public Use
  Company Number: US-SA-2019SA285206

PATIENT
  Sex: Male

DRUGS (1)
  1. DUPIXENT [Suspect]
     Active Substance: DUPILUMAB
     Indication: DERMATITIS ATOPIC
     Dosage: 600 MG, 1X
     Dates: start: 20191001, end: 20191001

REACTIONS (7)
  - Fatigue [Not Recovered/Not Resolved]
  - Pain in jaw [Recovering/Resolving]
  - Arthralgia [Recovering/Resolving]
  - Disturbance in attention [Unknown]
  - Injection site swelling [Unknown]
  - Serum sickness [Unknown]
  - Body temperature increased [Unknown]

NARRATIVE: CASE EVENT DATE: 20191007
